FAERS Safety Report 11450446 (Version 1)
Quarter: 2015Q3

REPORT INFORMATION
  Report Type: Spontaneous
  Country: US (occurrence: US)
  Receive Date: 20150903
  Receipt Date: 20150903
  Transmission Date: 20151125
  Serious: Yes (Hospitalization, Other)
  Sender: FDA-Public Use
  Company Number: US-ROCHE-1037310

PATIENT
  Age: 58 Year
  Sex: Female

DRUGS (3)
  1. INCIVEK [Suspect]
     Active Substance: TELAPREVIR
     Indication: HEPATITIS C
     Dosage: 3 TABLET IN MORNING AND 2 AT NIGHT
     Route: 048
     Dates: start: 20111025, end: 20111231
  2. PEGASYS [Suspect]
     Active Substance: PEGINTERFERON ALFA-2A
     Indication: HEPATITIS C
     Route: 058
     Dates: start: 20111025, end: 20111231
  3. COPEGUS [Suspect]
     Active Substance: RIBAVIRIN
     Indication: HEPATITIS C
     Route: 048
     Dates: start: 20111025, end: 20111231

REACTIONS (6)
  - Pneumonia [Recovering/Resolving]
  - White blood cell count decreased [Unknown]
  - Immunosuppression [Unknown]
  - Pyrexia [Unknown]
  - Fatigue [Unknown]
  - Pancytopenia [Recovered/Resolved]

NARRATIVE: CASE EVENT DATE: 20111231
